FAERS Safety Report 14357752 (Version 1)
Quarter: 2018Q1

REPORT INFORMATION
  Report Type: Other
  Country: RU (occurrence: RU)
  Receive Date: 20180105
  Receipt Date: 20180105
  Transmission Date: 20180509
  Serious: Yes (Hospitalization)
  Sender: FDA-Public Use
  Company Number: RU-LUPIN PHARMACEUTICALS INC.-2017-07746

PATIENT
  Age: 32 Year
  Sex: Female

DRUGS (2)
  1. CEFANTRAL [Suspect]
     Active Substance: CEFOTAXIME SODIUM
     Indication: PYELONEPHRITIS
     Dosage: 1 G, TID
     Route: 030
     Dates: start: 20130723, end: 20130725
  2. CIPROFLOXACIN. [Suspect]
     Active Substance: CIPROFLOXACIN
     Indication: PYELONEPHRITIS
     Dosage: 400 MG, BID
     Route: 042
     Dates: start: 20130725, end: 20130725

REACTIONS (3)
  - Sneezing [Recovering/Resolving]
  - Hyperaemia [Recovering/Resolving]
  - Conjunctival oedema [Recovering/Resolving]

NARRATIVE: CASE EVENT DATE: 20130725
